FAERS Safety Report 5656225-0 (Version None)
Quarter: 2008Q1

REPORT INFORMATION
  Report Type: 
  Country: None (occurrence: None)
  Receive Date: 20080305
  Receipt Date: 20071114
  Transmission Date: 20080703
  Serious: Yes (Death)
  Sender: FDA-Public Use
  Company Number: 2007EU002651

PATIENT
  Age: 52 Year
  Sex: Male

DRUGS (6)
  1. PROGRAF [Suspect]
     Indication: RENAL AND PANCREAS TRANSPLANT
     Dosage: ORAL; 8 UG/ML, ORAL
     Route: 048
  2. MYCOPHENOLATE MOFETIL [Suspect]
     Indication: RENAL AND PANCREAS TRANSPLANT
     Dosage: 1 G, BID, ORAL
     Route: 048
  3. METHYLPREDNISOLONE [Suspect]
     Indication: RENAL AND PANCREAS TRANSPLANT
     Dosage: 40 MG, DOSES, IV NOS; 6 MG, UID/QD, ORAL; 500 MG, TOTAL DOSE, IV NOS
  4. SIMULECT [Suspect]
     Indication: RENAL AND PANCREAS TRANSPLANT
     Dosage: 30 MG, DOSES, IV NOS
     Route: 042
  5. CORTICOSTEROIDS() [Suspect]
     Indication: RENAL AND PANCREAS TRANSPLANT REJECTION
  6. ANTITHYMOCYTE IMMUNOGLOBULIN (RABBIT) (ANTITHYMOCYTE IMMUNOGLOBULIN (R [Suspect]
     Indication: RENAL AND PANCREAS TRANSPLANT REJECTION

REACTIONS (20)
  - ATELECTASIS [None]
  - BRONCHOPULMONARY ASPERGILLOSIS [None]
  - CARDIAC FAILURE [None]
  - CARDIAC MURMUR [None]
  - ENTEROBACTER INFECTION [None]
  - ENTEROCOCCAL INFECTION [None]
  - FUNGAL ENDOCARDITIS [None]
  - HAEMOPTYSIS [None]
  - LIVER FUNCTION TEST ABNORMAL [None]
  - METABOLIC ACIDOSIS [None]
  - NEUTROPHIL COUNT INCREASED [None]
  - PERITONITIS [None]
  - PNEUMONIA [None]
  - PSEUDOMONAS INFECTION [None]
  - PULMONARY EMBOLISM [None]
  - PULMONARY HAEMORRHAGE [None]
  - RENAL FAILURE [None]
  - RESPIRATORY FAILURE [None]
  - SEPTIC SHOCK [None]
  - WOUND DEHISCENCE [None]
